FAERS Safety Report 10055853 (Version 2)
Quarter: 2014Q3

REPORT INFORMATION
  Report Type: Spontaneous
  Country: GB (occurrence: None)
  Receive Date: 20140401
  Receipt Date: 20140708
  Transmission Date: 20150326
  Serious: Yes (Other)
  Sender: FDA-Public Use
  Company Number: GB-DEXPHARM-20140142

PATIENT
  Age: 58 Year
  Sex: Male

DRUGS (1)
  1. OMEPRAZOLE (OMEPRAZOLE) [Suspect]
     Active Substance: OMEPRAZOLE
     Indication: GASTROOESOPHAGEAL REFLUX DISEASE
     Route: 048
     Dates: start: 20140202, end: 20140312

REACTIONS (12)
  - Weight decreased [None]
  - Chromaturia [None]
  - Dyspepsia [None]
  - Flatulence [None]
  - Depression [None]
  - Dry mouth [None]
  - Malaise [None]
  - Candida infection [None]
  - Chest pain [None]
  - Diarrhoea [None]
  - Abdominal pain [None]
  - Decreased appetite [None]
